FAERS Safety Report 5788163-7 (Version None)
Quarter: 2008Q2

REPORT INFORMATION
  Report Type: 
  Country: None (occurrence: None)
  Receive Date: 20080625
  Receipt Date: 20080417
  Transmission Date: 20081010
  Serious: Yes (Hospitalization)
  Sender: FDA-Public Use
  Company Number: US-BOEHRINGER INGELHEIM GMBH, GERMANY-2007-BP-20051BP

PATIENT
  Sex: Female
  Weight: 124 kg

DRUGS (10)
  1. MIRAPEX [Suspect]
     Indication: RESTLESS LEGS SYNDROME
     Route: 048
     Dates: start: 20020215, end: 20050701
  2. POTASSIUM CHLORIDE [Concomitant]
  3. SEROQUEL [Concomitant]
     Dates: end: 20010501
  4. PROTONIX [Concomitant]
  5. LASIX [Concomitant]
  6. LEXAPRO [Concomitant]
     Dates: start: 20020101, end: 20050101
  7. METFORMIN HCL [Concomitant]
  8. AMITRIPTILINE [Concomitant]
  9. SYNTHROID [Concomitant]
  10. ALBUTEROL [Concomitant]

REACTIONS (5)
  - DEPRESSION [None]
  - EMOTIONAL DISTRESS [None]
  - OBSESSIVE-COMPULSIVE DISORDER [None]
  - PATHOLOGICAL GAMBLING [None]
  - STRESS [None]
